FAERS Safety Report 25524198 (Version 2)
Quarter: 2025Q3

REPORT INFORMATION
  Report Type: Spontaneous
  Country: US (occurrence: US)
  Receive Date: 20250707
  Receipt Date: 20250826
  Transmission Date: 20251020
  Serious: No
  Sender: BAYER HEALTHCARE PHARMACEUTICALS INC.
  Company Number: US-BAYER-2025A088761

PATIENT
  Age: 27 Year
  Sex: Female

DRUGS (2)
  1. GADAVIST [Suspect]
     Active Substance: GADOBUTROL
     Indication: Magnetic resonance imaging neck
     Route: 042
     Dates: start: 20250703, end: 20250703
  2. GADAVIST [Suspect]
     Active Substance: GADOBUTROL
     Indication: Magnetic resonance imaging head

REACTIONS (4)
  - Throat irritation [None]
  - Rash [None]
  - Oral pruritus [None]
  - Sneezing [None]

NARRATIVE: CASE EVENT DATE: 20250703
